FAERS Safety Report 8721052 (Version 4)
Quarter: 2015Q4

REPORT INFORMATION
  Report Type: Spontaneous
  Country: US (occurrence: US)
  Receive Date: 20120813
  Receipt Date: 20151105
  Transmission Date: 20160305
  Serious: No
  Sender: FDA-Public Use
  Company Number: US-ASTRAZENECA-2011SE21443

PATIENT
  Age: 45 Year
  Sex: Female
  Weight: 69.4 kg

DRUGS (7)
  1. NEXIUM [Suspect]
     Active Substance: ESOMEPRAZOLE MAGNESIUM
     Indication: GASTROOESOPHAGEAL REFLUX DISEASE
     Route: 048
  2. ATACAND [Suspect]
     Active Substance: CANDESARTAN CILEXETIL
     Indication: BLOOD PRESSURE ABNORMAL
     Route: 048
  3. LISINOPRIL. [Suspect]
     Active Substance: LISINOPRIL
     Route: 048
  4. NEXIUM [Suspect]
     Active Substance: ESOMEPRAZOLE MAGNESIUM
     Indication: GASTROOESOPHAGEAL REFLUX DISEASE
     Route: 048
  5. ATACAND [Suspect]
     Active Substance: CANDESARTAN CILEXETIL
     Indication: BLOOD PRESSURE ABNORMAL
     Route: 048
  6. PRILOSEC [Suspect]
     Active Substance: OMEPRAZOLE MAGNESIUM
     Route: 048
  7. ORAL CONTRACEPTIVE NOS [Concomitant]
     Active Substance: UNSPECIFIED INGREDIENT

REACTIONS (14)
  - Malaise [Unknown]
  - Cough [Unknown]
  - Blood pressure abnormal [Unknown]
  - Muscle tightness [Unknown]
  - Stress [Recovered/Resolved]
  - Chest pain [Unknown]
  - Anxiety [Unknown]
  - Alopecia [Recovered/Resolved]
  - Intentional product misuse [Recovered/Resolved]
  - Blood pressure increased [Unknown]
  - Migraine [Unknown]
  - Drug dose omission [Unknown]
  - Panic attack [Unknown]
  - Gastrooesophageal reflux disease [Unknown]
